FAERS Safety Report 4843111-9 (Version None)
Quarter: 2005Q4

REPORT INFORMATION
  Report Type: 
  Country: None (occurrence: None)
  Receive Date: 20051027
  Receipt Date: 20051003
  Transmission Date: 20060501
  Serious: No
  Sender: FDA-Public Use
  Company Number: ZICO001312

PATIENT
  Age: 48 Year
  Sex: Male

DRUGS (12)
  1. PRIALT [Suspect]
     Dosage: 0.05 MCG/HR INTRATHECAL
     Route: 037
     Dates: start: 20050805, end: 20050101
  2. ROXICODONE [Concomitant]
  3. OXYLR (OXYCODONE) [Concomitant]
  4. SOMA [Concomitant]
  5. ACEON (PERINDOPRIL) [Concomitant]
  6. FLORICET (FLORICET) [Concomitant]
  7. PHENERGAN (PROMETHAZINE) [Concomitant]
  8. ORAL PHENERGAN (PROMETHAZINE) [Concomitant]
  9. CLONIDINE [Concomitant]
  10. NEURONTIN [Concomitant]
  11. CYMBALTA [Concomitant]
  12. DILAUDID [Concomitant]

REACTIONS (22)
  - BACK PAIN [None]
  - CHILLS [None]
  - DECREASED ACTIVITY [None]
  - DECREASED APPETITE [None]
  - DEHYDRATION [None]
  - DIZZINESS [None]
  - DRUG WITHDRAWAL SYNDROME [None]
  - DYSGEUSIA [None]
  - HANGOVER [None]
  - HEADACHE [None]
  - HOT FLUSH [None]
  - HYPERHIDROSIS [None]
  - HYPOAESTHESIA [None]
  - INSOMNIA [None]
  - MUSCLE SPASMS [None]
  - MUSCLE TIGHTNESS [None]
  - MUSCULOSKELETAL STIFFNESS [None]
  - NAUSEA [None]
  - PAIN IN EXTREMITY [None]
  - TEMPERATURE INTOLERANCE [None]
  - TREMOR [None]
  - VOMITING [None]
